FAERS Safety Report 17986534 (Version 1)
Quarter: 2020Q3

REPORT INFORMATION
  Report Type: Spontaneous
  Country: US (occurrence: US)
  Receive Date: 20200706
  Receipt Date: 20200706
  Transmission Date: 20201103
  Serious: Yes (Other)
  Sender: FDA-Public Use
  Company Number: US-JAZZ-JPI-P-026822

PATIENT
  Age: 45 Year
  Sex: Female
  Weight: 93.18 kg

DRUGS (11)
  1. XYREM [Suspect]
     Active Substance: SODIUM OXYBATE
     Indication: CATAPLEXY
     Dosage: 4 GRAM, FIRST DOSE
     Route: 048
  2. IRBESARTAN. [Concomitant]
     Active Substance: IRBESARTAN
     Indication: HYPERTENSION
     Dates: start: 20121207, end: 20130114
  3. XYREM [Suspect]
     Active Substance: SODIUM OXYBATE
     Indication: NARCOLEPSY
     Dosage: UNKNOWN SINGLE DOSE
     Route: 048
     Dates: start: 20121130
  4. XYREM [Suspect]
     Active Substance: SODIUM OXYBATE
     Dosage: 2 GRAM, SECOND DOSE
     Route: 048
  5. IRBESARTAN. [Concomitant]
     Active Substance: IRBESARTAN
     Dates: start: 20130115
  6. MODAFINIL. [Suspect]
     Active Substance: MODAFINIL
     Indication: NARCOLEPSY
     Dosage: UNKNOWN SINGLE DOSE
     Dates: start: 20121211, end: 20121214
  7. CHLORTHALIDONE. [Concomitant]
     Active Substance: CHLORTHALIDONE
     Indication: HYPERTENSION
  8. XYREM [Suspect]
     Active Substance: SODIUM OXYBATE
     Dosage: 4.5 GRAM, QD
     Route: 048
     Dates: start: 20121211, end: 20121213
  9. XYREM [Suspect]
     Active Substance: SODIUM OXYBATE
     Dosage: 4.5 GRAM, BID
     Route: 048
  10. DEXTROAMPHETAMINE [DEXAMFETAMINE] [Suspect]
     Active Substance: DEXTROAMPHETAMINE
     Indication: PRODUCT USED FOR UNKNOWN INDICATION
  11. FUROSEMIDE. [Concomitant]
     Active Substance: FUROSEMIDE
     Indication: HYPERTENSION
     Dates: start: 20130106

REACTIONS (24)
  - Scleritis [Recovered/Resolved]
  - Vertigo [Unknown]
  - Cataplexy [Unknown]
  - Dysphonia [Recovered/Resolved]
  - Throat irritation [Recovered/Resolved]
  - Paraesthesia [Recovered/Resolved]
  - Vision blurred [Recovered/Resolved]
  - Condition aggravated [Recovered/Resolved]
  - Neuropathy peripheral [Recovered/Resolved]
  - Myoclonus [Recovered/Resolved]
  - Burning sensation [Recovered/Resolved]
  - Fatigue [Unknown]
  - Abnormal dreams [Unknown]
  - Nausea [Unknown]
  - Therapeutic response unexpected [Unknown]
  - Nightmare [Unknown]
  - Eye swelling [Recovered/Resolved]
  - Blood pressure decreased [Unknown]
  - Blood pressure increased [Unknown]
  - Condition aggravated [Unknown]
  - Swelling face [Recovered/Resolved]
  - Speech disorder [Unknown]
  - Fluid retention [Unknown]
  - Pain [Unknown]

NARRATIVE: CASE EVENT DATE: 20121130
